FAERS Safety Report 7535645-3 (Version None)
Quarter: 2011Q2

REPORT INFORMATION
  Report Type: 
  Country: None (occurrence: None)
  Receive Date: 20110602
  Receipt Date: 20110523
  Transmission Date: 20111010
  Serious: Yes (Other)
  Sender: FDA-Public Use
  Company Number: 2011SP023774

PATIENT
  Sex: Male

DRUGS (2)
  1. PEG-INTRON [Suspect]
     Indication: HEPATITIS
     Dates: end: 20100925
  2. RIBASPHERE [Suspect]
     Indication: HEPATITIS
     Dates: end: 20100925

REACTIONS (5)
  - MALAISE [None]
  - CORONARY ARTERY OCCLUSION [None]
  - ANGINA PECTORIS [None]
  - DRY EYE [None]
  - ASTHENIA [None]
